FAERS Safety Report 9008074 (Version 2)
Quarter: 2014Q1

REPORT INFORMATION
  Report Type: Spontaneous
  Country: US (occurrence: US)
  Receive Date: 20130111
  Receipt Date: 20140109
  Transmission Date: 20141002
  Serious: Yes (Hospitalization, Other)
  Sender: FDA-Public Use
  Company Number: US-BAYER-2013-003251

PATIENT
  Age: 22 Year
  Sex: Female

DRUGS (4)
  1. YAZ [Suspect]
     Indication: ACNE
  2. YASMIN [Suspect]
     Indication: ACNE
  3. TREXIMET [Concomitant]
     Dosage: UNK
     Dates: start: 20080627
  4. IBUPROFEN [Concomitant]
     Indication: HEADACHE

REACTIONS (8)
  - Deep vein thrombosis [None]
  - Pulmonary embolism [None]
  - Cholecystectomy [None]
  - Cholecystitis chronic [None]
  - Injury [None]
  - Pain [None]
  - Anxiety [None]
  - Pain [None]
